FAERS Safety Report 9799539 (Version 2)
Quarter: 2015Q3

REPORT INFORMATION
  Report Type: Spontaneous
  Country: US (occurrence: US)
  Receive Date: 20140106
  Receipt Date: 20150806
  Transmission Date: 20151125
  Serious: No
  Sender: FDA-Public Use
  Company Number: US-GILEAD-2010-0030136

PATIENT
  Age: 78 Year
  Sex: Female
  Weight: 59.42 kg

DRUGS (14)
  1. LANTUS [Concomitant]
     Active Substance: INSULIN GLARGINE
  2. DIOVAN [Concomitant]
     Active Substance: VALSARTAN
  3. ADCIRCA [Concomitant]
     Active Substance: TADALAFIL
  4. LETAIRIS [Suspect]
     Active Substance: AMBRISENTAN
     Indication: PULMONARY ARTERIAL HYPERTENSION
     Route: 048
     Dates: start: 20090408
  5. METOPROLOL [Concomitant]
     Active Substance: METOPROLOL
  6. TYLENOL [Concomitant]
     Active Substance: ACETAMINOPHEN
  7. CENTRUM [Concomitant]
     Active Substance: VITAMINS
  8. ZOCOR [Concomitant]
     Active Substance: SIMVASTATIN
  9. COUMADIN [Concomitant]
     Active Substance: WARFARIN SODIUM
  10. LASIX [Concomitant]
     Active Substance: FUROSEMIDE
  11. IRON [Concomitant]
     Active Substance: IRON
  12. OMEPRAZOLE. [Concomitant]
     Active Substance: OMEPRAZOLE
  13. PROTONIX [Concomitant]
     Active Substance: PANTOPRAZOLE SODIUM
  14. LOPRESSOR HCT [Concomitant]
     Active Substance: HYDROCHLOROTHIAZIDE\METOPROLOL TARTRATE

REACTIONS (2)
  - Nasal congestion [Unknown]
  - Oedema peripheral [Unknown]
